FAERS Safety Report 7240091-6 (Version None)
Quarter: 2011Q1

REPORT INFORMATION
  Report Type: 
  Country: None (occurrence: None)
  Receive Date: 20110112
  Receipt Date: 20110106
  Transmission Date: 20110831
  Serious: Yes (Other)
  Sender: FDA-Public Use
  Company Number: 2011MA000131

PATIENT
  Sex: Female

DRUGS (1)
  1. METOCLOPRAMIDE TABLETS USP, 10 MG (PUREPAC) [Suspect]
     Dates: start: 20070701, end: 20090301

REACTIONS (4)
  - RESTLESS LEGS SYNDROME [None]
  - DYSKINESIA [None]
  - ECONOMIC PROBLEM [None]
  - EMOTIONAL DISORDER [None]
